FAERS Safety Report 9991426 (Version 1)
Quarter: 2014Q1

REPORT INFORMATION
  Report Type: Report from Study
  Country: US (occurrence: US)
  Receive Date: 20140310
  Receipt Date: 20140310
  Transmission Date: 20141002
  Serious: Yes (Other)
  Sender: FDA-Public Use
  Company Number: US-ABBVIE-13P-163-1129588-00

PATIENT
  Sex: Female
  Weight: 75.82 kg

DRUGS (5)
  1. HUMIRA [Suspect]
     Indication: RHEUMATOID ARTHRITIS
     Route: 058
     Dates: start: 2003, end: 200901
  2. HUMIRA [Suspect]
     Dates: start: 201106, end: 201203
  3. HUMIRA [Suspect]
     Dates: start: 201212, end: 20130714
  4. METHOTREXATE [Concomitant]
     Indication: RHEUMATOID ARTHRITIS
  5. PREDNISONE [Concomitant]
     Indication: RHEUMATOID ARTHRITIS

REACTIONS (1)
  - Rheumatoid arthritis [Not Recovered/Not Resolved]
